FAERS Safety Report 12557354 (Version 3)
Quarter: 2016Q4

REPORT INFORMATION
  Report Type: Spontaneous
  Country: DE (occurrence: DE)
  Receive Date: 20160714
  Receipt Date: 20161111
  Transmission Date: 20170207
  Serious: Yes (Hospitalization)
  Sender: FDA-Public Use
  Company Number: DE-MYLANLABS-2016M1028326

PATIENT

DRUGS (1)
  1. GABAPENTIN. [Suspect]
     Active Substance: GABAPENTIN
     Indication: PRODUCT USED FOR UNKNOWN INDICATION
     Dosage: 100 MG, UNK
     Route: 048
     Dates: start: 201509, end: 201510

REACTIONS (3)
  - Aggression [Unknown]
  - Confusional state [Unknown]
  - Insomnia [Unknown]

NARRATIVE: CASE EVENT DATE: 20151123
